FAERS Safety Report 23077971 (Version 1)
Quarter: 2023Q4

REPORT INFORMATION
  Report Type: Other
  Country: GB (occurrence: GB)
  Receive Date: 20231018
  Receipt Date: 20231018
  Transmission Date: 20240110
  Serious: Yes (Disabling, Other)
  Sender: FDA-Public Use
  Company Number: None

PATIENT

DRUGS (2)
  1. SERTRALINE HYDROCHLORIDE [Suspect]
     Active Substance: SERTRALINE HYDROCHLORIDE
     Indication: Generalised anxiety disorder
     Dosage: 25 MG, QD
     Route: 065
     Dates: start: 20230726, end: 20230805
  2. LEVOTHYROXINE [Concomitant]
     Active Substance: LEVOTHYROXINE
     Indication: Hypothyroidism
     Dosage: UNK
     Route: 065

REACTIONS (8)
  - Urinary incontinence [Not Recovered/Not Resolved]
  - Renal pain [Not Recovered/Not Resolved]
  - Cough [Not Recovered/Not Resolved]
  - Breast pain [Not Recovered/Not Resolved]
  - Muscle spasms [Recovered/Resolved]
  - Pain in extremity [Not Recovered/Not Resolved]
  - Bladder pain [Not Recovered/Not Resolved]
  - Medication error [Unknown]
